FAERS Safety Report 13952884 (Version 1)
Quarter: 2017Q3

REPORT INFORMATION
  Report Type: Spontaneous
  Country: US (occurrence: US)
  Receive Date: 20170911
  Receipt Date: 20170911
  Transmission Date: 20171128
  Serious: No
  Sender: FDA-Public Use
  Company Number: US-TEVA-761791ACC

PATIENT
  Sex: Female

DRUGS (1)
  1. FENTANYL. [Suspect]
     Active Substance: FENTANYL
     Dosage: PATCH
     Route: 062
     Dates: start: 20170410

REACTIONS (7)
  - Discomfort [Unknown]
  - Application site erythema [Unknown]
  - Application site vesicles [Unknown]
  - Product quality issue [Unknown]
  - Product adhesion issue [Unknown]
  - Application site burn [Unknown]
  - Application site irritation [Unknown]
